FAERS Safety Report 5629059-0 (Version None)
Quarter: 2008Q1

REPORT INFORMATION
  Report Type: 
  Country: None (occurrence: None)
  Receive Date: 20080216
  Receipt Date: 20071219
  Transmission Date: 20080703
  Serious: Yes (Death, Other)
  Sender: FDA-Public Use
  Company Number: US-PURDUE-USA_2007_0031640

PATIENT
  Age: 56 Year
  Sex: Male

DRUGS (2)
  1. OXYCONTIN [Suspect]
     Indication: ABDOMINAL PAIN LOWER
     Dosage: 100 MG, BID
     Route: 048
     Dates: start: 20010626, end: 20010706
  2. LABETALOL HCL [Concomitant]
     Indication: HYPERTENSION

REACTIONS (38)
  - AGITATION [None]
  - ANOREXIA [None]
  - BLOOD BILIRUBIN INCREASED [None]
  - BLOOD CREATININE INCREASED [None]
  - BLOOD UREA INCREASED [None]
  - CONFUSIONAL STATE [None]
  - CONSTIPATION [None]
  - DEATH [None]
  - DISORIENTATION [None]
  - DIZZINESS [None]
  - DRUG WITHDRAWAL SYNDROME [None]
  - DRY MOUTH [None]
  - EYE ROLLING [None]
  - FALL [None]
  - GASTROINTESTINAL PAIN [None]
  - HALLUCINATION [None]
  - HEART RATE IRREGULAR [None]
  - HYPERHIDROSIS [None]
  - LETHARGY [None]
  - MALIGNANT NEOPLASM PROGRESSION [None]
  - MUSCULAR WEAKNESS [None]
  - NAUSEA [None]
  - NERVOUSNESS [None]
  - OCULAR ICTERUS [None]
  - OEDEMA [None]
  - OEDEMA PERIPHERAL [None]
  - OXYGEN SATURATION ABNORMAL [None]
  - PAIN [None]
  - PALLOR [None]
  - RENAL FAILURE [None]
  - RESPIRATION ABNORMAL [None]
  - RESTLESSNESS [None]
  - SCROTAL SWELLING [None]
  - SOMNOLENCE [None]
  - TREMOR [None]
  - URINE COLOUR ABNORMAL [None]
  - VOMITING [None]
  - YELLOW SKIN [None]
